FAERS Safety Report 14284835 (Version 1)
Quarter: 2017Q4

REPORT INFORMATION
  Report Type: Spontaneous
  Country: US (occurrence: US)
  Receive Date: 20171214
  Receipt Date: 20171214
  Transmission Date: 20180321
  Serious: Yes (Hospitalization, Disabling)
  Sender: FDA-Public Use
  Company Number: None

PATIENT
  Age: 55 Year
  Sex: Female
  Weight: 62 kg

DRUGS (16)
  1. NIFEDIPINE. [Concomitant]
     Active Substance: NIFEDIPINE
  2. PREGABALIN. [Concomitant]
     Active Substance: PREGABALIN
  3. CEFEPIME [Concomitant]
     Active Substance: CEFEPIME HYDROCHLORIDE
  4. APIXABAN [Suspect]
     Active Substance: APIXABAN
     Indication: ATRIAL FIBRILLATION
     Route: 048
  5. CALCITRIOL. [Concomitant]
     Active Substance: CALCITRIOL
  6. CLONIDINE. [Concomitant]
     Active Substance: CLONIDINE
  7. OXYCODONE AND ACETAMINOPHEN [Concomitant]
     Active Substance: ACETAMINOPHEN\OXYCODONE HYDROCHLORIDE
  8. SODIUM BICARB [Concomitant]
     Active Substance: SODIUM BICARBONATE
  9. AZLASARTAN [Concomitant]
  10. APIXABAN [Suspect]
     Active Substance: APIXABAN
     Indication: DEEP VEIN THROMBOSIS
     Route: 048
  11. FUROSEMIDE. [Concomitant]
     Active Substance: FUROSEMIDE
  12. SEVELEMER [Concomitant]
  13. CEFAZOLIN [Concomitant]
     Active Substance: CEFAZOLIN
  14. SIMVASTATIN. [Concomitant]
     Active Substance: SIMVASTATIN
  15. CARVEDILOL. [Concomitant]
     Active Substance: CARVEDILOL
  16. DETEMIR [Concomitant]

REACTIONS (3)
  - Drug hypersensitivity [None]
  - Skin necrosis [None]
  - Drug eruption [None]

NARRATIVE: CASE EVENT DATE: 20170315
